FAERS Safety Report 16858534 (Version 2)
Quarter: 2019Q4

REPORT INFORMATION
  Report Type: Spontaneous
  Country: CA (occurrence: CA)
  Receive Date: 20190926
  Receipt Date: 20191016
  Transmission Date: 20200122
  Serious: Yes (Life-Threatening)
  Sender: FDA-Public Use
  Company Number: CA-PFIZER INC-2019412679

PATIENT
  Sex: Female

DRUGS (2)
  1. METHOTREXATE SODIUM. [Suspect]
     Active Substance: METHOTREXATE SODIUM
     Indication: RHEUMATOID ARTHRITIS
     Dosage: UNK
  2. RITUXIMAB. [Suspect]
     Active Substance: RITUXIMAB
     Dosage: UNK

REACTIONS (8)
  - Arthralgia [Unknown]
  - Abdominal sepsis [Unknown]
  - Fatigue [Unknown]
  - Inflammation [Unknown]
  - Pain [Unknown]
  - C-reactive protein increased [Unknown]
  - Abdominal abscess [Unknown]
  - Musculoskeletal stiffness [Unknown]
